FAERS Safety Report 23984895 (Version 1)
Quarter: 2024Q2

REPORT INFORMATION
  Report Type: Spontaneous
  Country: NL (occurrence: NL)
  Receive Date: 20240618
  Receipt Date: 20240618
  Transmission Date: 20240716
  Serious: Yes (Hospitalization)
  Sender: FDA-Public Use
  Company Number: NL-NOVITIUMPHARMA-2024NLNVP01040

PATIENT
  Age: 30 Year
  Sex: Female

DRUGS (3)
  1. ACYCLOVIR [Suspect]
     Active Substance: ACYCLOVIR
     Indication: Encephalitis autoimmune
  2. LEVETIRACETAM [Concomitant]
     Active Substance: LEVETIRACETAM
     Indication: Encephalitis autoimmune
  3. MEROPENEM [Concomitant]
     Active Substance: MEROPENEM
     Indication: Encephalitis autoimmune

REACTIONS (2)
  - Teratoma [Unknown]
  - Exposure during pregnancy [Unknown]
